FAERS Safety Report 8999323 (Version 2)
Quarter: 2013Q1

REPORT INFORMATION
  Report Type: Spontaneous
  Country: GB (occurrence: GB)
  Receive Date: 20130103
  Receipt Date: 20130305
  Transmission Date: 20140127
  Serious: Yes (Hospitalization, Other)
  Sender: FDA-Public Use
  Company Number: GB-JNJFOC-20121211646

PATIENT
  Age: 45 Year
  Sex: Female

DRUGS (2)
  1. TRAMADOL HYDROCHLORIDE [Suspect]
     Indication: NECK PAIN
     Dosage: 100-200 MG
     Route: 065
     Dates: start: 201212, end: 20121205
  2. TRAMADOL HYDROCHLORIDE [Suspect]
     Indication: SPINAL PAIN
     Dosage: 100-200 MG
     Route: 065
     Dates: start: 201212, end: 20121205

REACTIONS (5)
  - Liver function test abnormal [Unknown]
  - Metamorphopsia [Unknown]
  - Withdrawal syndrome [Unknown]
  - Hallucination [Not Recovered/Not Resolved]
  - Intentional overdose [Unknown]
